FAERS Safety Report 9354189 (Version 1)
Quarter: 2013Q2

REPORT INFORMATION
  Report Type: Report from Study
  Country: IN (occurrence: IN)
  Receive Date: 20130618
  Receipt Date: 20130618
  Transmission Date: 20140414
  Serious: Yes (Death)
  Sender: FDA-Public Use
  Company Number: IN-GLAXOSMITHKLINE-B0900303A

PATIENT
  Age: 67 Year
  Sex: Male

DRUGS (2)
  1. CARZEC [Suspect]
     Indication: HYPERTENSION
  2. UNSPECIFIED MEDICATIONS [Concomitant]

REACTIONS (1)
  - Dyspnoea [Fatal]
